FAERS Safety Report 12046943 (Version 1)
Quarter: 2016Q1

REPORT INFORMATION
  Report Type: Spontaneous
  Country: US (occurrence: US)
  Receive Date: 20160208
  Receipt Date: 20160208
  Transmission Date: 20160526
  Serious: No
  Sender: FDA-Public Use
  Company Number: US-MEDA-2015030034

PATIENT
  Age: 53 Year
  Sex: Female
  Weight: 79 kg

DRUGS (1)
  1. ELESTRIN [Suspect]
     Active Substance: ESTRADIOL
     Route: 061
     Dates: start: 20150310, end: 20150312

REACTIONS (2)
  - Abdominal pain [Not Recovered/Not Resolved]
  - Diarrhoea [Not Recovered/Not Resolved]

NARRATIVE: CASE EVENT DATE: 20150310
